FAERS Safety Report 4396043-7 (Version None)
Quarter: 2004Q2

REPORT INFORMATION
  Report Type: 
  Country: None (occurrence: None)
  Receive Date: 20040621
  Receipt Date: 20031117
  Transmission Date: 20050107
  Serious: Yes (Death)
  Sender: FDA-Public Use
  Company Number: USA-2003-0010838

PATIENT
  Age: 22 Year
  Sex: Male
  Weight: 75.3 kg

DRUGS (6)
  1. OXYCODONE HCL [Suspect]
  2. MORPHINE SULFATE [Suspect]
  3. DIAZEPAM [Suspect]
  4. ALPRAZOLAM [Suspect]
  5. CLONAZEPAM [Suspect]
  6. COCAINE (COCAINE) [Suspect]

REACTIONS (2)
  - ACCIDENTAL OVERDOSE [None]
  - MULTIPLE DRUG OVERDOSE [None]
